FAERS Safety Report 25839510 (Version 1)
Quarter: 2025Q3

REPORT INFORMATION
  Report Type: Report from Study
  Country: CA (occurrence: CA)
  Receive Date: 20250924
  Receipt Date: 20250924
  Transmission Date: 20251020
  Serious: Yes (Other)
  Sender: CELLTRION
  Company Number: CA-CELLTRION INC.-2025CA016935

PATIENT

DRUGS (7)
  1. INFLIXIMAB-DYYB [Suspect]
     Active Substance: INFLIXIMAB-DYYB
     Indication: Crohn^s disease
     Dosage: 400 MG, Q4WEEKS MAINTENANCE
     Route: 042
     Dates: start: 20250527
  2. INFLIXIMAB-DYYB [Suspect]
     Active Substance: INFLIXIMAB-DYYB
     Dosage: 400 MG, Q4WEEKS MAINTENANCE
     Route: 042
     Dates: start: 20250527
  3. INFLIXIMAB-DYYB [Suspect]
     Active Substance: INFLIXIMAB-DYYB
     Dosage: 400 MG, Q4WEEKS MAINTENANCE
     Route: 042
     Dates: start: 20250819
  4. INFLIXIMAB-DYYB [Suspect]
     Active Substance: INFLIXIMAB-DYYB
     Dosage: 400 MG, Q4WEEKS MAINTENANCE
     Route: 042
     Dates: start: 20250916
  5. GRAVOL [Concomitant]
     Active Substance: DIMENHYDRINATE
     Indication: Nausea
     Route: 065
  6. VITAMIN B12 [Concomitant]
     Active Substance: CYANOCOBALAMIN
     Indication: Product used for unknown indication
     Route: 065
  7. VITAMIN D NOS [Concomitant]
     Active Substance: CHOLECALCIFEROL\ERGOCALCIFEROL
     Indication: Product used for unknown indication
     Route: 065

REACTIONS (7)
  - Uveitis [Unknown]
  - Diarrhoea [Unknown]
  - Harvey-Bradshaw index increased [Unknown]
  - Arthralgia [Unknown]
  - Abdominal pain [Unknown]
  - Intentional product use issue [Unknown]
  - Overdose [Unknown]
